FAERS Safety Report 23505281 (Version 1)
Quarter: 2024Q1

REPORT INFORMATION
  Report Type: Spontaneous
  Country: DE (occurrence: DE)
  Receive Date: 20240209
  Receipt Date: 20240209
  Transmission Date: 20240410
  Serious: Yes (Other)
  Sender: FDA-Public Use
  Company Number: DE-AUROBINDO-AUR-APL-2024-006114

PATIENT
  Sex: Male

DRUGS (1)
  1. RISPERIDONE [Suspect]
     Active Substance: RISPERIDONE
     Indication: Schizophrenia
     Dosage: UNK
     Route: 048

REACTIONS (8)
  - Paralysis [Unknown]
  - Anxiety [Unknown]
  - Asthenia [Unknown]
  - Feeling of despair [Unknown]
  - Helplessness [Unknown]
  - Weight increased [Unknown]
  - Apathy [Unknown]
  - Depressed mood [Unknown]
